FAERS Safety Report 10517164 (Version 1)
Quarter: 2014Q4

REPORT INFORMATION
  Report Type: Spontaneous
  Country: None (occurrence: None)
  Receive Date: 20141003
  Receipt Date: 20141003
  Transmission Date: 20150528
  Serious: Yes (Other)
  Sender: FDA-Public Use
  Company Number: 1305960

PATIENT
  Age: 58 Year
  Sex: Male

DRUGS (4)
  1. RIBAVIRIN. [Suspect]
     Active Substance: RIBAVIRIN
     Indication: HEPATITIS C
     Dosage: 1200 MG, (600 MG, 2 IN 1 D)  SUBCUTANEOUS
     Route: 048
     Dates: start: 200508, end: 200607
  2. INCIVEK [Suspect]
     Active Substance: TELAPREVIR
     Indication: HEPATITIS C
     Dosage: (750 MG, 1 IN 8 HR), ORAL
     Dates: start: 20120420, end: 201303
  3. PEGASYS [Suspect]
     Active Substance: PEGINTERFERON ALFA-2A
     Indication: HEPATITIS C
     Route: 058
     Dates: start: 200508, end: 200607
  4. PREDNISONE. [Concomitant]
     Active Substance: PREDNISONE

REACTIONS (7)
  - Hepatic cancer [None]
  - Rash [None]
  - Sarcoidosis [None]
  - Diarrhoea [None]
  - Dyspnoea [None]
  - Oedema peripheral [None]
  - Anorectal discomfort [None]
